FAERS Safety Report 10459629 (Version 2)
Quarter: 2014Q3

REPORT INFORMATION
  Report Type: Report from Study
  Country: US (occurrence: US)
  Receive Date: 20140917
  Receipt Date: 20140917
  Transmission Date: 20150326
  Serious: Yes (Hospitalization)
  Sender: FDA-Public Use
  Company Number: US-BRISTOL-MYERS SQUIBB COMPANY-21159736

PATIENT
  Age: 53 Year
  Sex: Male
  Weight: 95.6 kg

DRUGS (3)
  1. IPILIMUMAB [Suspect]
     Active Substance: IPILIMUMAB
     Indication: MALIGNANT MELANOMA
     Dosage: LAST DOSE ADMINISTERED - 21MAY2014?TOTAL DOSE:277 MG.
     Route: 042
     Dates: start: 20140409
  2. IVIG [Concomitant]
     Active Substance: HUMAN IMMUNOGLOBULIN G
  3. TESTOSTERONE. [Concomitant]
     Active Substance: TESTOSTERONE

REACTIONS (4)
  - Haemolysis [Unknown]
  - Pulmonary embolism [Unknown]
  - Peripheral sensory neuropathy [Not Recovered/Not Resolved]
  - Tremor [Unknown]

NARRATIVE: CASE EVENT DATE: 20140521
